FAERS Safety Report 24238714 (Version 6)
Quarter: 2025Q4

REPORT INFORMATION
  Report Type: Spontaneous
  Country: US (occurrence: US)
  Receive Date: 20240822
  Receipt Date: 20251203
  Transmission Date: 20260118
  Serious: Yes (Hospitalization, Other)
  Sender: PFIZER
  Company Number: US-PFIZER INC-PV202400108321

PATIENT
  Age: 56 Year
  Sex: Female

DRUGS (3)
  1. IBRANCE [Suspect]
     Active Substance: PALBOCICLIB
     Indication: Breast cancer female
     Dosage: 125 MG
     Dates: start: 20240709, end: 20241127
  2. IBRANCE [Suspect]
     Active Substance: PALBOCICLIB
     Dosage: 100 MG
     Dates: start: 2024
  3. DULERA [Suspect]
     Active Substance: FORMOTEROL FUMARATE DIHYDRATE\MOMETASONE FUROATE
     Dosage: UNK

REACTIONS (19)
  - Pneumonia [Unknown]
  - Sepsis [Unknown]
  - Immunosuppression [Unknown]
  - Fatigue [Unknown]
  - Cough [Not Recovered/Not Resolved]
  - Pyrexia [Unknown]
  - Pain [Unknown]
  - Nausea [Unknown]
  - Constipation [Unknown]
  - Dyspnoea exertional [Unknown]
  - Decreased appetite [Recovered/Resolved]
  - Visual impairment [Unknown]
  - Conjunctivitis [Unknown]
  - Vision blurred [Unknown]
  - Photophobia [Unknown]
  - Vitreous floaters [Unknown]
  - Altered visual depth perception [Unknown]
  - Clumsiness [Unknown]
  - Upper-airway cough syndrome [Unknown]

NARRATIVE: CASE EVENT DATE: 20240101
